FAERS Safety Report 10201299 (Version 5)
Quarter: 2014Q3

REPORT INFORMATION
  Report Type: Spontaneous
  Country: US (occurrence: US)
  Receive Date: 20140528
  Receipt Date: 20140904
  Transmission Date: 20150326
  Serious: Yes (Hospitalization, Disabling, Other)
  Sender: FDA-Public Use
  Company Number: US-009507513-1205USA01104

PATIENT
  Sex: Female
  Weight: 63.39 kg

DRUGS (3)
  1. FOSAMAX [Suspect]
     Active Substance: ALENDRONATE SODIUM
     Indication: OSTEOPENIA
     Dosage: 70 MG, QW
     Route: 048
     Dates: start: 20030606, end: 200802
  2. ALENDRONATE SODIUM. [Suspect]
     Active Substance: ALENDRONATE SODIUM
     Indication: OSTEOPOROSIS
     Dosage: 70 MG, UNK
     Route: 048
     Dates: start: 20080219, end: 201008
  3. FOSAMAX [Suspect]
     Active Substance: ALENDRONATE SODIUM
     Indication: OSTEOPOROSIS
     Dosage: 10 MG, UNK
     Route: 048
     Dates: start: 20000803, end: 200306

REACTIONS (62)
  - Hyperlipidaemia [Not Recovered/Not Resolved]
  - Stress fracture [Unknown]
  - Osteochondroma [Unknown]
  - Enthesopathy [Unknown]
  - Vaginal infection [Unknown]
  - Change of bowel habit [Unknown]
  - Pain in extremity [Unknown]
  - Frustration [Not Recovered/Not Resolved]
  - Arthroscopy [Unknown]
  - Fall [Unknown]
  - Benign bone neoplasm [Unknown]
  - Kyphosis [Unknown]
  - Asthenia [Unknown]
  - Flatulence [Unknown]
  - Renal failure [Unknown]
  - Bursitis [Unknown]
  - Osteoarthritis [Unknown]
  - Adjustment disorder [Unknown]
  - Actinic keratosis [Unknown]
  - Skin infection [Unknown]
  - Hypokalaemia [Unknown]
  - Femur fracture [Unknown]
  - Osteoporosis [Unknown]
  - Foot fracture [Recovered/Resolved]
  - Insomnia [Unknown]
  - Seborrhoeic keratosis [Unknown]
  - Hypersomnia [Unknown]
  - Femur fracture [Recovering/Resolving]
  - Bone density decreased [Unknown]
  - Haemorrhagic anaemia [Unknown]
  - Cholecystectomy [Unknown]
  - Breast prosthesis implantation [Unknown]
  - Anxiety [Not Recovered/Not Resolved]
  - Fear of falling [Not Recovered/Not Resolved]
  - Hysterectomy [Unknown]
  - Haemoptysis [Unknown]
  - Arthropod bite [Unknown]
  - Vaginal disorder [Unknown]
  - Somnolence [Unknown]
  - Intramedullary rod insertion [Recovering/Resolving]
  - Foot deformity [Unknown]
  - Nephrolithiasis [Unknown]
  - Osteoarthritis [Unknown]
  - Depressed mood [Unknown]
  - Meniscus injury [Unknown]
  - Benign cartilage neoplasm [Unknown]
  - Seborrhoeic keratosis [Unknown]
  - Restless legs syndrome [Unknown]
  - Sacroiliitis [Unknown]
  - Cystitis [Unknown]
  - Stress [Unknown]
  - Arthralgia [Unknown]
  - Pain in extremity [Unknown]
  - Muscular weakness [Unknown]
  - Arthritis [Unknown]
  - Benign soft tissue neoplasm [Unknown]
  - Benign neoplasm of skin [Unknown]
  - Altered state of consciousness [Unknown]
  - Vulvovaginitis [Unknown]
  - Fatigue [Unknown]
  - Gastrooesophageal reflux disease [Not Recovered/Not Resolved]
  - Muscle spasms [Unknown]

NARRATIVE: CASE EVENT DATE: 2000
